FAERS Safety Report 9537792 (Version 3)
Quarter: 2013Q4

REPORT INFORMATION
  Report Type: Spontaneous
  Country: DE (occurrence: DE)
  Receive Date: 20130919
  Receipt Date: 20131106
  Transmission Date: 20140711
  Serious: Yes (Death, Hospitalization, Other)
  Sender: FDA-Public Use
  Company Number: DE-ROCHE-1278353

PATIENT
  Age: 68 Year
  Sex: Female
  Weight: 68 kg

DRUGS (8)
  1. XELODA [Suspect]
     Indication: BREAST CANCER METASTATIC
     Dosage: DAY 1-14
     Route: 042
     Dates: start: 20130731, end: 20130813
  2. ZOMETA [Concomitant]
     Route: 065
     Dates: start: 201201
  3. FLUOROURACIL [Concomitant]
     Route: 065
     Dates: start: 2004
  4. EPIRUBICIN [Concomitant]
     Route: 065
     Dates: start: 2004
  5. CYCLOPHOSPHAMIDE [Concomitant]
     Route: 065
     Dates: start: 2004
  6. TAXOL [Concomitant]
     Route: 065
     Dates: start: 201201, end: 201201
  7. ARIMIDEX [Concomitant]
     Route: 065
     Dates: start: 2004, end: 2012
  8. TAMOXIFEN [Concomitant]
     Route: 065
     Dates: start: 2004, end: 2012

REACTIONS (3)
  - Sepsis [Fatal]
  - Neutropenia [Unknown]
  - Diarrhoea [Unknown]
